FAERS Safety Report 9674703 (Version 1)
Quarter: 2013Q4

REPORT INFORMATION
  Report Type: Spontaneous
  Country: US (occurrence: US)
  Receive Date: 20131107
  Receipt Date: 20131107
  Transmission Date: 20140711
  Serious: Yes (Other)
  Sender: FDA-Public Use
  Company Number: US-GLENMARK GENERICS INC.-2013GMK007421

PATIENT
  Sex: Female

DRUGS (1)
  1. CITALOPRAM HYDROBROMIDE [Suspect]
     Indication: DEPRESSION
     Dosage: UNK

REACTIONS (5)
  - Encephalopathy [Unknown]
  - Dizziness [Unknown]
  - Headache [Unknown]
  - Basilar artery stenosis [Unknown]
  - Carotid artery stenosis [Unknown]
